FAERS Safety Report 8160029-7 (Version None)
Quarter: 2012Q1

REPORT INFORMATION
  Report Type: 
  Country: None (occurrence: None)
  Receive Date: 20120223
  Receipt Date: 20120216
  Transmission Date: 20120608
  Serious: Yes (Other)
  Sender: FDA-Public Use
  Company Number: FR-GLAXOSMITHKLINE-B0781894A

PATIENT
  Sex: Female

DRUGS (2)
  1. NEO-MERCAZOLE TAB [Concomitant]
     Indication: THYROIDITIS SUBACUTE
     Dosage: 40MG PER DAY
     Dates: start: 20110715, end: 20110720
  2. PROMACTA [Suspect]
     Indication: AUTOIMMUNE THROMBOCYTOPENIA
     Dosage: 25MG ALTERNATE DAYS
     Route: 048
     Dates: start: 20110221, end: 20110720

REACTIONS (1)
  - HEPATOCELLULAR INJURY [None]
